FAERS Safety Report 5608791-9 (Version None)
Quarter: 2008Q1

REPORT INFORMATION
  Report Type: 
  Country: None (occurrence: None)
  Receive Date: 20080129
  Receipt Date: 20080129
  Transmission Date: 20080703
  Serious: Yes (Hospitalization)
  Sender: FDA-Public Use
  Company Number: None

PATIENT
  Age: 49 Year
  Sex: Male
  Weight: 90.9 kg

DRUGS (4)
  1. BEVACIZUMAB [Suspect]
     Indication: OESOPHAGEAL CARCINOMA
     Dosage: 10 MG QCD1 AND8 IV
     Route: 042
     Dates: start: 20060922, end: 20070914
  2. DOCETAXEL [Suspect]
     Indication: OESOPHAGEAL CARCINOMA
     Dosage: 10 MG QCD1 AND8 IV
     Route: 042
     Dates: start: 20060922, end: 20070914
  3. CISPLATIN [Suspect]
     Indication: OESOPHAGEAL CARCINOMA
     Dosage: 25MG/M2 10 MG QCD1 AND8 IV
     Route: 042
     Dates: start: 20060922, end: 20070914
  4. IRINOTECAN [Suspect]
     Indication: OESOPHAGEAL CARCINOMA
     Dosage: 50MG/M2 10 MG QCD1 AND8 IV
     Route: 042
     Dates: start: 20060922, end: 20070914

REACTIONS (8)
  - DEHYDRATION [None]
  - DEPRESSED LEVEL OF CONSCIOUSNESS [None]
  - DISEASE PROGRESSION [None]
  - DYSPNOEA [None]
  - ENCEPHALOPATHY [None]
  - HYPOTENSION [None]
  - SMALL INTESTINAL OBSTRUCTION [None]
  - VIRUS SEROLOGY TEST POSITIVE [None]
